FAERS Safety Report 8391170-1 (Version None)
Quarter: 2012Q1

REPORT INFORMATION
  Report Type: 
  Country: None (occurrence: None)
  Receive Date: 20120323
  Receipt Date: 20110328
  Transmission Date: 20120608
  Serious: Yes (Other)
  Sender: FDA-Public Use
  Company Number: 163-21880-11033246

PATIENT
  Age: 68 Year
  Sex: Female

DRUGS (4)
  1. BLOOD TRANSFUSION [Concomitant]
  2. REVLIMID [Suspect]
     Indication: MULTIPLE MYELOMA
     Dosage: 25 MG, DAILY FOR 21 DAYS, PO ; 10 MG, DAILY FOR 28 DAYS, PO ; 10 MG, DAILY FOR 28 DAYS, PO
     Route: 048
     Dates: start: 20101028, end: 20101224
  3. REVLIMID [Suspect]
     Indication: MULTIPLE MYELOMA
     Dosage: 25 MG, DAILY FOR 21 DAYS, PO ; 10 MG, DAILY FOR 28 DAYS, PO ; 10 MG, DAILY FOR 28 DAYS, PO
     Route: 048
     Dates: start: 20110303, end: 20110322
  4. REVLIMID [Suspect]
     Indication: MULTIPLE MYELOMA
     Dosage: 25 MG, DAILY FOR 21 DAYS, PO ; 10 MG, DAILY FOR 28 DAYS, PO ; 10 MG, DAILY FOR 28 DAYS, PO
     Route: 048
     Dates: start: 20100714, end: 20101028

REACTIONS (1)
  - HAEMOGLOBIN DECREASED [None]
